FAERS Safety Report 7064978-2 (Version None)
Quarter: 2010Q4

REPORT INFORMATION
  Report Type: 
  Country: None (occurrence: None)
  Receive Date: 20101027
  Receipt Date: 19920403
  Transmission Date: 20110411
  Serious: Yes (Death, Life-Threatening, Hospitalization)
  Sender: FDA-Public Use
  Company Number: DE-ROCHE-920317916001

PATIENT
  Sex: Female
  Weight: 67 kg

DRUGS (9)
  1. ROCEPHIN [Suspect]
     Route: 042
     Dates: start: 19920313, end: 19920323
  2. REFOBACIN [Suspect]
     Indication: PRODUCT USED FOR UNKNOWN INDICATION
     Route: 042
     Dates: start: 19920313, end: 19920323
  3. VANCOMYCIN [Suspect]
     Indication: PRODUCT USED FOR UNKNOWN INDICATION
     Route: 042
     Dates: start: 19920313, end: 19920320
  4. PEPDUL [Suspect]
     Indication: PROPHYLAXIS
     Route: 048
     Dates: start: 19920229, end: 19920323
  5. ZOVIRAX [Concomitant]
     Route: 048
     Dates: start: 19920305, end: 19920320
  6. DIFLUCAN [Concomitant]
     Route: 042
     Dates: start: 19920305, end: 19920320
  7. DIFLUCAN [Concomitant]
     Route: 048
     Dates: start: 19920321, end: 19920323
  8. CYTARABINE [Concomitant]
     Indication: MYELOID LEUKAEMIA
     Route: 065
     Dates: start: 19920302, end: 19920306
  9. ADRIBLASTIN [Concomitant]
     Indication: CHEMOTHERAPY
     Route: 065
     Dates: start: 19920302, end: 19920303

REACTIONS (4)
  - DIARRHOEA [None]
  - RASH [None]
  - RENAL FAILURE ACUTE [None]
  - SEPSIS [None]
